FAERS Safety Report 5700219-3 (Version None)
Quarter: 2008Q2

REPORT INFORMATION
  Report Type: 
  Country: None (occurrence: None)
  Receive Date: 20080409
  Receipt Date: 20080402
  Transmission Date: 20081010
  Serious: Yes (Other)
  Sender: FDA-Public Use
  Company Number: FR-JNJFOC-20080303591

PATIENT
  Age: 23 Year
  Sex: Male

DRUGS (1)
  1. RISPERDAL CONSTA [Suspect]
     Indication: CHILDHOOD PSYCHOSIS
     Route: 030
     Dates: start: 20071001

REACTIONS (4)
  - BRADYCARDIA [None]
  - CARDIAC VENTRICULAR DISORDER [None]
  - ELECTROCARDIOGRAM ST SEGMENT ELEVATION [None]
  - NON-OBSTRUCTIVE CARDIOMYOPATHY [None]
